FAERS Safety Report 4992426-2 (Version None)
Quarter: 2006Q1

REPORT INFORMATION
  Report Type: 
  Country: None (occurrence: None)
  Receive Date: 20060315
  Receipt Date: 20050303
  Transmission Date: 20060701
  Serious: Yes (Other)
  Sender: FDA-Public Use
  Company Number: USA050392251

PATIENT
  Age: 75 Year
  Sex: Female
  Weight: 80.5 kg

DRUGS (2)
  1. GEMZAR [Suspect]
     Indication: URETERIC CANCER METASTATIC
     Dosage: 1500 MG, WEEKLY (1/W), INTRAVENOUS
     Route: 042
     Dates: start: 20040601
  2. CARBOPLATIN [Concomitant]

REACTIONS (1)
  - PNEUMONITIS [None]
